FAERS Safety Report 21518905 (Version 1)
Quarter: 2022Q4

REPORT INFORMATION
  Report Type: Spontaneous
  Country: US (occurrence: None)
  Receive Date: 20221027
  Receipt Date: 20221027
  Transmission Date: 20230113
  Serious: No
  Sender: FDA-Public Use
  Company Number: None

PATIENT
  Age: 72 Year
  Sex: Female

DRUGS (1)
  1. LENALIDOMIDE [Suspect]
     Active Substance: LENALIDOMIDE
     Indication: Plasma cell myeloma
     Dosage: FREQUENCY : DAILY;?
     Route: 048
     Dates: start: 20160325

REACTIONS (5)
  - Limb discomfort [None]
  - Fatigue [None]
  - Tremor [None]
  - Tremor [None]
  - Manufacturing issue [None]

NARRATIVE: CASE EVENT DATE: 20221007
